FAERS Safety Report 4510618-3 (Version None)
Quarter: 2004Q4

REPORT INFORMATION
  Report Type: 
  Country: None (occurrence: None)
  Receive Date: 20041124
  Receipt Date: 20041027
  Transmission Date: 20050328
  Serious: Yes (Hospitalization)
  Sender: FDA-Public Use
  Company Number: ESWYE162129OCT04

PATIENT
  Age: 53 Year
  Sex: Female

DRUGS (2)
  1. ENBREL [Suspect]
     Indication: RHEUMATOID ARTHRITIS
     Route: 058
     Dates: start: 20030501, end: 20031001
  2. CORTICOSTEROID NOS [Concomitant]

REACTIONS (3)
  - EYE PAIN [None]
  - OPHTHALMOPLEGIA [None]
  - TOLOSA-HUNT SYNDROME [None]
